FAERS Safety Report 7938017-2 (Version None)
Quarter: 2011Q4

REPORT INFORMATION
  Report Type: 
  Country: None (occurrence: None)
  Receive Date: 20111123
  Receipt Date: 20111118
  Transmission Date: 20120403
  Serious: Yes (Hospitalization, Other)
  Sender: FDA-Public Use
  Company Number: SE-US-EMD SERONO, INC.-7097050

PATIENT
  Sex: Male

DRUGS (4)
  1. REBIF [Suspect]
     Indication: RELAPSING-REMITTING MULTIPLE SCLEROSIS
     Dates: start: 20100201, end: 20111118
  2. SERTRALINE HYDROCHLORIDE [Concomitant]
  3. LYRICA [Concomitant]
  4. CANDESARTAN CILEXETIL [Concomitant]

REACTIONS (4)
  - PULMONARY THROMBOSIS [None]
  - RENAL NEOPLASM [None]
  - PYREXIA [None]
  - CHILLS [None]
